FAERS Safety Report 9433485 (Version 1)
Quarter: 2013Q3

REPORT INFORMATION
  Report Type: Report from Study
  Country: CA (occurrence: CA)
  Receive Date: 20130731
  Receipt Date: 20130731
  Transmission Date: 20140515
  Serious: Yes (Hospitalization)
  Sender: FDA-Public Use
  Company Number: CA-ABBOTT-13P-028-1126329-00

PATIENT
  Sex: Female

DRUGS (1)
  1. HUMIRA [Suspect]
     Indication: CROHN^S DISEASE
     Route: 058
     Dates: start: 20120802, end: 201305

REACTIONS (5)
  - Intestinal obstruction [Unknown]
  - Dyspepsia [Unknown]
  - Inflammation [Unknown]
  - Fatigue [Not Recovered/Not Resolved]
  - Abdominal pain upper [Unknown]
